FAERS Safety Report 7047759-5 (Version None)
Quarter: 2010Q4

REPORT INFORMATION
  Report Type: 
  Country: None (occurrence: None)
  Receive Date: 20101015
  Receipt Date: 20101011
  Transmission Date: 20110411
  Serious: Yes (Other)
  Sender: FDA-Public Use
  Company Number: US-PFIZER INC-2010129574

PATIENT
  Sex: Female
  Weight: 104.31 kg

DRUGS (2)
  1. NORVASC [Suspect]
     Indication: HYPERTENSION
     Dosage: 10 MG, 1X/DAY
     Route: 048
     Dates: start: 20080101
  2. CLONIDINE [Concomitant]
     Dosage: UNK

REACTIONS (3)
  - FACE OEDEMA [None]
  - METAL POISONING [None]
  - OEDEMA PERIPHERAL [None]
